FAERS Safety Report 8625273-0 (Version None)
Quarter: 2012Q3

REPORT INFORMATION
  Report Type: 
  Country: None (occurrence: None)
  Receive Date: 20120827
  Receipt Date: 20120816
  Transmission Date: 20120928
  Serious: Yes (Hospitalization, Other)
  Sender: FDA-Public Use
  Company Number: FR-ASTRAZENECA-2012SE60182

PATIENT
  Age: 83 Year
  Sex: Male

DRUGS (8)
  1. PERINDOPRIL ERBUMINE [Suspect]
     Indication: HYPERTENSION
     Route: 048
  2. CRESTOR [Suspect]
     Indication: PROPHYLAXIS
     Route: 048
  3. CLOPIDOGREL BISULFATE AND ASPIRIN [Suspect]
     Route: 048
  4. METFORMIN HCL [Concomitant]
  5. POTASSIUM CHLORIDE [Concomitant]
  6. ATENOLOL [Concomitant]
  7. PROPYLTHIOURACIL [Suspect]
     Indication: HYPERTHYROIDISM
     Route: 048
     Dates: start: 20120430, end: 20120610
  8. LASIX [Suspect]
     Route: 048

REACTIONS (3)
  - HEPATIC FAILURE [None]
  - RENAL FAILURE ACUTE [None]
  - HYPERTHYROIDISM [None]
